FAERS Safety Report 7358752-7 (Version None)
Quarter: 2011Q1

REPORT INFORMATION
  Report Type: 
  Country: None (occurrence: None)
  Receive Date: 20110317
  Receipt Date: 20101129
  Transmission Date: 20110831
  Serious: Yes (Hospitalization)
  Sender: FDA-Public Use
  Company Number: A0898474A

PATIENT
  Age: 56 Year
  Sex: Female

DRUGS (2)
  1. AVANDAMET [Suspect]
     Route: 048
     Dates: start: 20071126
  2. AVANDIA [Suspect]
     Dosage: 4MG PER DAY
     Route: 048
     Dates: start: 20031203, end: 20071125

REACTIONS (1)
  - ARTERIOSCLEROSIS [None]
